FAERS Safety Report 8614501-3 (Version None)
Quarter: 2012Q3

REPORT INFORMATION
  Report Type: 
  Country: None (occurrence: None)
  Receive Date: 20120823
  Receipt Date: 20120815
  Transmission Date: 20120928
  Serious: Yes (Hospitalization)
  Sender: FDA-Public Use
  Company Number: NL-JNJFOC-20120810591

PATIENT
  Sex: Female

DRUGS (4)
  1. TRAMADOL HCL [Concomitant]
     Dosage: DOSAGE FORM MODIFIED RELEASE CAPSULE, HARD
     Dates: start: 20120710
  2. SYNAPAUSE E3 [Concomitant]
     Dosage: BIW
     Dates: start: 20110311
  3. XARELTO [Suspect]
     Indication: THROMBOSIS PROPHYLAXIS
     Route: 048
     Dates: start: 20120711, end: 20120718
  4. RAMIPRIL [Concomitant]
     Dates: start: 20090611

REACTIONS (2)
  - DUODENAL ULCER [None]
  - MELAENA [None]
